FAERS Safety Report 16097913 (Version 1)
Quarter: 2019Q1

REPORT INFORMATION
  Report Type: Spontaneous
  Country: JP (occurrence: JP)
  Receive Date: 20190320
  Receipt Date: 20190320
  Transmission Date: 20190418
  Serious: Yes (Death, Other)
  Sender: FDA-Public Use
  Company Number: JP-TOLMAR, INC.-TOLG20192185

PATIENT
  Age: 1 Day
  Sex: Male

DRUGS (13)
  1. LIPO-DEXAMETHASONE PALMITATE [Concomitant]
     Indication: HAEMOPHAGOCYTIC LYMPHOHISTIOCYTOSIS
     Dosage: 4 MG/M2/DAY
     Route: 065
  2. LIPO-DEXAMETHASONE PALMITATE [Concomitant]
     Dosage: 8 MG/M2/DAY
     Route: 065
  3. LIPO-DEXAMETHASONE PALMITATE [Concomitant]
     Dosage: 5 MG/M2/DAY
     Route: 065
  4. ACYCLOVIR. [Suspect]
     Active Substance: ACYCLOVIR
     Dosage: INCREASED TO 30 MG/KG
     Route: 042
  5. PREDNISOLONE. [Concomitant]
     Active Substance: PREDNISOLONE
     Indication: HAEMOPHAGOCYTIC LYMPHOHISTIOCYTOSIS
     Dosage: 2 MG/KG/DAY
     Route: 065
  6. LIPO-DEXAMETHASONE PALMITATE [Concomitant]
     Dosage: 6.6 MG/M2/DAY
     Route: 065
  7. LIPO-DEXAMETHASONE PALMITATE [Concomitant]
     Dosage: 6.6 MG/M2/DAY
     Route: 065
  8. ACYCLOVIR. [Suspect]
     Active Substance: ACYCLOVIR
     Indication: CONGENITAL HERPES SIMPLEX INFECTION
     Dosage: INCREASED TO 40 MG/KG
     Route: 042
  9. LIPO-DEXAMETHASONE PALMITATE [Concomitant]
     Dosage: 10 MG/M2/DAY
     Route: 065
  10. LIPO-DEXAMETHASONE PALMITATE [Concomitant]
     Dosage: 5 MG/M2/DAY
     Route: 065
  11. METHYLPREDNISOLONE. [Suspect]
     Active Substance: METHYLPREDNISOLONE
     Indication: HAEMOPHAGOCYTIC LYMPHOHISTIOCYTOSIS
     Dosage: 30 MG/KG/DAY
     Route: 065
  12. ACYCLOVIR. [Suspect]
     Active Substance: ACYCLOVIR
     Dosage: 20 MG/KG
     Route: 042
  13. FOSCARNET [Concomitant]
     Active Substance: FOSCARNET
     Indication: HAEMOPHAGOCYTIC LYMPHOHISTIOCYTOSIS
     Dosage: 60 MG/KG
     Route: 042

REACTIONS (7)
  - Immunosuppression [Fatal]
  - Renal failure [Fatal]
  - Underdose [Fatal]
  - Pneumothorax [Fatal]
  - Multiple organ dysfunction syndrome [Fatal]
  - Pathogen resistance [Fatal]
  - Treatment failure [Fatal]
